FAERS Safety Report 5874073-3 (Version None)
Quarter: 2008Q3

REPORT INFORMATION
  Report Type: 
  Country: None (occurrence: None)
  Receive Date: 20080829
  Receipt Date: 20080815
  Transmission Date: 20090109
  Serious: Yes (Hospitalization)
  Sender: FDA-Public Use
  Company Number: GB-1167023

PATIENT
  Age: 79 Year
  Sex: Male

DRUGS (2)
  1. AZOPT [Suspect]
     Indication: GLAUCOMA
     Dosage: BID
     Route: 047
     Dates: start: 20060621, end: 20060726
  2. ASPIRIN [Concomitant]

REACTIONS (1)
  - EPISTAXIS [None]
